FAERS Safety Report 8135904-X (Version None)
Quarter: 2012Q1

REPORT INFORMATION
  Report Type: 
  Country: None (occurrence: None)
  Receive Date: 20120214
  Receipt Date: 20120206
  Transmission Date: 20120608
  Serious: Yes (Death)
  Sender: FDA-Public Use
  Company Number: US-CELGENEUS-163-21880-11090988

PATIENT
  Sex: Male

DRUGS (8)
  1. REVLIMID [Suspect]
     Indication: MULTIPLE MYELOMA
     Dosage: 10 MILLIGRAM
     Route: 048
     Dates: start: 20110101
  2. PREDNISONE TAB [Concomitant]
     Dosage: 20 MILLIGRAM
     Route: 065
  3. SIMVASTATIN [Concomitant]
     Dosage: 20 MILLIGRAM
     Route: 065
  4. FLOMAX [Concomitant]
     Dosage: .4 MILLIGRAM
     Route: 065
  5. OXYCODONE HCL [Concomitant]
     Route: 065
  6. LISINOPRIL [Concomitant]
     Dosage: 5 MILLIGRAM
     Route: 065
  7. METOCLOPRAMIDE [Concomitant]
     Dosage: 25 MILLIGRAM
     Route: 065
  8. ISOSORBIDE DINITRATE [Concomitant]
     Dosage: 30 MILLIGRAM
     Route: 065

REACTIONS (2)
  - CARDIAC FAILURE CONGESTIVE [None]
  - MULTIPLE MYELOMA [None]
